FAERS Safety Report 5901693-X (Version None)
Quarter: 2008Q3

REPORT INFORMATION
  Report Type: 
  Country: None (occurrence: None)
  Receive Date: 20080929
  Receipt Date: 20080918
  Transmission Date: 20090109
  Serious: Yes (Other)
  Sender: FDA-Public Use
  Company Number: A0749507A

PATIENT
  Age: 35 Year
  Sex: Female

DRUGS (4)
  1. LAMOTRIGINE [Suspect]
     Indication: BIPOLAR DISORDER
     Dosage: 150MG PER DAY
  2. WELLBUTRIN [Concomitant]
     Indication: DRUG USE FOR UNKNOWN INDICATION
  3. TRILEPTAL [Concomitant]
     Indication: DRUG USE FOR UNKNOWN INDICATION
  4. LEXAPRO [Concomitant]
     Indication: DRUG USE FOR UNKNOWN INDICATION

REACTIONS (2)
  - ABORTION SPONTANEOUS [None]
  - DRUG EXPOSURE DURING PREGNANCY [None]
